FAERS Safety Report 20729930 (Version 1)
Quarter: 2022Q2

REPORT INFORMATION
  Report Type: Spontaneous
  Country: US (occurrence: None)
  Receive Date: 20220419
  Receipt Date: 20220419
  Transmission Date: 20220721
  Serious: No
  Sender: FDA-Public Use
  Company Number: None

PATIENT
  Age: 59 Year
  Sex: Female
  Weight: 93.44 kg

DRUGS (7)
  1. LETROZOLE [Suspect]
     Active Substance: LETROZOLE
     Indication: Breast cancer female
  2. CLARITIN [Concomitant]
  3. VITAMIN D2 [Concomitant]
     Active Substance: ERGOCALCIFEROL
  4. Mag Ox [Concomitant]
  5. Albuterol [Concomitant]
  6. IBRANCE [Concomitant]
  7. Xgeva Injection [Concomitant]

REACTIONS (2)
  - Dyspnoea [None]
  - Oedema peripheral [None]
